FAERS Safety Report 22117089 (Version 1)
Quarter: 2023Q1

REPORT INFORMATION
  Report Type: Spontaneous
  Country: US (occurrence: US)
  Receive Date: 20230320
  Receipt Date: 20230320
  Transmission Date: 20230418
  Serious: Yes (Other)
  Sender: FDA-Public Use
  Company Number: US-PFIZER INC-202101771656

PATIENT
  Age: 64 Year
  Sex: Female
  Weight: 92.1 kg

DRUGS (5)
  1. PREMARIN [Suspect]
     Active Substance: ESTROGENS, CONJUGATED
     Indication: Vulvovaginal dryness
     Dosage: 2.5 MG, 1X/DAY (TAKE 2 TABLETS (2.5 MG TOTAL))
     Route: 048
  2. PREMARIN [Suspect]
     Active Substance: ESTROGENS, CONJUGATED
     Indication: Insomnia
     Dosage: 1.25 MG, 2X/DAY
     Route: 048
     Dates: start: 20220912
  3. PREMARIN [Suspect]
     Active Substance: ESTROGENS, CONJUGATED
     Indication: Emotional disorder
     Dosage: DAILY DOSE 1.25
     Route: 048
     Dates: start: 20221210
  4. PREMARIN [Suspect]
     Active Substance: ESTROGENS, CONJUGATED
     Indication: Osteoporosis
  5. PREMARIN [Suspect]
     Active Substance: ESTROGENS, CONJUGATED
     Indication: Hot flush

REACTIONS (3)
  - Thrombosis [Unknown]
  - Product dispensing error [Unknown]
  - Off label use [Unknown]
